FAERS Safety Report 10956395 (Version 1)
Quarter: 2015Q1

REPORT INFORMATION
  Report Type: Report from Study
  Country: US (occurrence: US)
  Receive Date: 20150326
  Receipt Date: 20150326
  Transmission Date: 20150721
  Serious: Yes (Hospitalization, Other)
  Sender: FDA-Public Use
  Company Number: US-ABBVIE-15K-163-1362531-00

PATIENT
  Sex: Female

DRUGS (2)
  1. HUMIRA [Suspect]
     Active Substance: ADALIMUMAB
     Route: 065
     Dates: start: 201409
  2. HUMIRA [Suspect]
     Active Substance: ADALIMUMAB
     Indication: CROHN^S DISEASE
     Route: 065
     Dates: start: 2012

REACTIONS (7)
  - Ovarian neoplasm [Not Recovered/Not Resolved]
  - Clostridium difficile infection [Recovered/Resolved]
  - Injection site pain [Recovered/Resolved]
  - Abdominal mass [Unknown]
  - Renal failure [Unknown]
  - Pneumonia [Unknown]
  - Kidney infection [Recovered/Resolved]

NARRATIVE: CASE EVENT DATE: 2014
